FAERS Safety Report 11617197 (Version 4)
Quarter: 2016Q2

REPORT INFORMATION
  Report Type: Spontaneous
  Country: IT (occurrence: IT)
  Receive Date: 20151009
  Receipt Date: 20160607
  Transmission Date: 20160815
  Serious: Yes (Hospitalization, Other)
  Sender: FDA-Public Use
  Company Number: IT-AMGEN-ITASP2015104607

PATIENT
  Age: 45 Year
  Sex: Male
  Weight: 140 kg

DRUGS (1)
  1. ARANESP [Suspect]
     Active Substance: DARBEPOETIN ALFA
     Indication: NEPHROGENIC ANAEMIA
     Dosage: 100 MUG, QWK
     Route: 042
     Dates: start: 20150302, end: 20150814

REACTIONS (7)
  - Lymphocyte count decreased [Unknown]
  - Blood iron increased [Unknown]
  - Haematocrit decreased [Unknown]
  - Blood folate abnormal [Unknown]
  - Reticulocyte percentage abnormal [Unknown]
  - Red blood cell count abnormal [Unknown]
  - Aplasia pure red cell [Not Recovered/Not Resolved]

NARRATIVE: CASE EVENT DATE: 20150713
